FAERS Safety Report 9648871 (Version 1)
Quarter: 2013Q4

REPORT INFORMATION
  Report Type: Spontaneous
  Country: CH (occurrence: CH)
  Receive Date: 20131028
  Receipt Date: 20131028
  Transmission Date: 20140711
  Serious: Yes (Hospitalization)
  Sender: FDA-Public Use
  Company Number: CH-PFIZER INC-2013304337

PATIENT
  Age: 74 Year
  Sex: Female

DRUGS (5)
  1. PONSTAN [Suspect]
     Indication: BACK PAIN
     Dosage: 500 MG, AS NEEDED
     Route: 048
     Dates: end: 20131002
  2. IBUPROFEN [Suspect]
     Indication: BACK PAIN
     Dosage: 600 MG, FREQUENCY BETWEEN 2X/DAY AND 4X/DAY
     Route: 048
     Dates: end: 20131002
  3. CYMBALTA [Suspect]
     Dosage: 60 MG, 1X/DAY
     Route: 048
     Dates: start: 20130405
  4. IMOVANE [Concomitant]
     Dosage: 7.5 MG, 1X/DAY
     Route: 048
  5. LANSOPRAZOLE [Concomitant]
     Dosage: 30 MG, 1X/DAY
     Route: 048
     Dates: end: 20131002

REACTIONS (4)
  - Diarrhoea [Recovered/Resolved]
  - Vomiting [Recovered/Resolved]
  - Abdominal pain upper [Recovering/Resolving]
  - Weight decreased [Unknown]
